FAERS Safety Report 23486193 (Version 1)
Quarter: 2024Q1

REPORT INFORMATION
  Report Type: Other
  Country: SE (occurrence: None)
  Receive Date: 20240206
  Receipt Date: 20240206
  Transmission Date: 20240410
  Serious: Yes (Death, Hospitalization, Other)
  Sender: FDA-Public Use
  Company Number: SE-ROCHE-3501306

PATIENT

DRUGS (4)
  1. RITUXIMAB [Suspect]
     Active Substance: RITUXIMAB
     Indication: Neuromyelitis optica spectrum disorder
     Dosage: THE INDUCTION DOSE VARIED BETWEEN 100 AND 2000 MG, THE MEAN MAINTENANCE DOSE WAS 100-1000 MG, AND TH
     Route: 065
  2. PREDNISOLONE [Concomitant]
     Active Substance: PREDNISOLONE
  3. AZATHIOPRINE [Concomitant]
     Active Substance: AZATHIOPRINE
  4. TOCILIZUMAB [Concomitant]
     Active Substance: TOCILIZUMAB
     Route: 065

REACTIONS (13)
  - Respiratory failure [Fatal]
  - Pseudomonas infection [Fatal]
  - Pneumonia [Fatal]
  - Sepsis [Fatal]
  - Pneumonia streptococcal [Fatal]
  - Decubitus ulcer [Fatal]
  - Urinary tract infection [Unknown]
  - Upper respiratory tract infection [Unknown]
  - Skin bacterial infection [Unknown]
  - Infection [Unknown]
  - Drug specific antibody present [Unknown]
  - Hypogammaglobulinaemia [Unknown]
  - Treatment failure [Unknown]
